FAERS Safety Report 22330740 (Version 1)
Quarter: 2023Q2

REPORT INFORMATION
  Report Type: Spontaneous
  Country: US (occurrence: None)
  Receive Date: 20230515
  Receipt Date: 20230515
  Transmission Date: 20230722
  Serious: Yes (Disabling)
  Sender: FDA-Public Use
  Company Number: None

PATIENT
  Age: 47 Year
  Sex: Female
  Weight: 108 kg

DRUGS (1)
  1. TYMLOS [Suspect]
     Active Substance: ABALOPARATIDE
     Indication: Osteoporosis
     Dosage: FREQUENCY : DAILY;?
     Route: 030
     Dates: start: 20211001

REACTIONS (10)
  - Dizziness [None]
  - Nausea [None]
  - Palpitations [None]
  - Migraine [None]
  - Bone pain [None]
  - Pain in jaw [None]
  - Neck pain [None]
  - Post procedural complication [None]
  - Screaming [None]
  - Crying [None]

NARRATIVE: CASE EVENT DATE: 20211001
